FAERS Safety Report 10145988 (Version 2)
Quarter: 2014Q2

REPORT INFORMATION
  Report Type: Spontaneous
  Country: SE (occurrence: SE)
  Receive Date: 20140501
  Receipt Date: 20140610
  Transmission Date: 20141212
  Serious: Yes (Hospitalization)
  Sender: FDA-Public Use
  Company Number: SE-BAYER-2014-059824

PATIENT
  Age: 60 Year
  Sex: Male

DRUGS (5)
  1. ADALAT [Suspect]
  2. ADALAT [Suspect]
     Dosage: 10 MG, BID
     Route: 048
     Dates: start: 20131219, end: 20131223
  3. METOPROLOL [Suspect]
     Indication: HEART RATE ABNORMAL
     Dosage: 100 MG, QD
     Route: 048
     Dates: start: 20130726, end: 20131213
  4. METOPROLOL [Suspect]
     Indication: BLOOD PRESSURE MANAGEMENT
  5. TROMBYL [Suspect]
     Dosage: 75 MG, QD
     Route: 048
     Dates: start: 20131220, end: 20131227

REACTIONS (1)
  - Skin reaction [Unknown]
